FAERS Safety Report 22045608 (Version 1)
Quarter: 2023Q1

REPORT INFORMATION
  Report Type: Spontaneous
  Country: US (occurrence: US)
  Receive Date: 20230228
  Receipt Date: 20230228
  Transmission Date: 20230417
  Serious: Yes (Other)
  Sender: FDA-Public Use
  Company Number: US-BAYER-2023A021173

PATIENT
  Age: 62 Year
  Sex: Female

DRUGS (1)
  1. KERENDIA [Suspect]
     Active Substance: FINERENONE
     Dosage: 10 MG
     Route: 048
     Dates: end: 20230219

REACTIONS (5)
  - Cerebrovascular accident [None]
  - Asthenia [None]
  - Feeling drunk [None]
  - Gait disturbance [None]
  - Slow speech [None]

NARRATIVE: CASE EVENT DATE: 20230215
